FAERS Safety Report 6225000-0 (Version None)
Quarter: 2009Q2

REPORT INFORMATION
  Report Type: 
  Country: None (occurrence: None)
  Receive Date: 20090612
  Receipt Date: 20090402
  Transmission Date: 20091009
  Serious: No
  Sender: FDA-Public Use
  Company Number: US-ABBOTT-09P-163-0566520-00

PATIENT
  Sex: Female
  Weight: 59.02 kg

DRUGS (9)
  1. HUMIRA [Suspect]
     Indication: ANKYLOSING SPONDYLITIS
     Route: 058
     Dates: start: 20090101, end: 20090301
  2. HUMIRA [Suspect]
     Dates: start: 20090301
  3. FENTANYL [Concomitant]
     Indication: PAIN
  4. NEURONTIN [Concomitant]
     Indication: ANXIOLYTIC THERAPY
  5. FLEXERIL [Concomitant]
     Indication: FIBROMYALGIA
  6. LUNESTA [Concomitant]
     Indication: SLEEP DISORDER THERAPY
  7. ELAVIL [Concomitant]
     Indication: SLEEP DISORDER THERAPY
  8. LEXAPRO [Concomitant]
     Indication: DEPRESSION
  9. CALCIUM [Concomitant]
     Indication: MINERAL SUPPLEMENTATION

REACTIONS (10)
  - ANXIETY [None]
  - CHEST DISCOMFORT [None]
  - INJECTION SITE IRRITATION [None]
  - INJECTION SITE PAIN [None]
  - LOWER RESPIRATORY TRACT INFECTION [None]
  - ORAL HERPES [None]
  - OROPHARYNGEAL PAIN [None]
  - PALPITATIONS [None]
  - RESPIRATION ABNORMAL [None]
  - SENSORY DISTURBANCE [None]
